FAERS Safety Report 18491685 (Version 1)
Quarter: 2020Q4

REPORT INFORMATION
  Report Type: Spontaneous
  Country: US (occurrence: US)
  Receive Date: 20201111
  Receipt Date: 20201111
  Transmission Date: 20210114
  Serious: Yes (Hospitalization)
  Sender: FDA-Public Use
  Company Number: US-TEVA-2020-US-1846368

PATIENT
  Age: 37 Year
  Sex: Female

DRUGS (7)
  1. AZITHROMYCIN ANHYDROUS. [Suspect]
     Active Substance: AZITHROMYCIN ANHYDROUS
     Indication: PROPHYLAXIS
     Route: 065
  2. AXITINIB [Concomitant]
     Active Substance: AXITINIB
     Indication: METASTASES TO LUNG
  3. AXITINIB [Concomitant]
     Active Substance: AXITINIB
     Indication: ALVEOLAR SOFT PART SARCOMA
     Route: 065
  4. PEMBROLIZUMAB. [Suspect]
     Active Substance: PEMBROLIZUMAB
     Indication: ALVEOLAR SOFT PART SARCOMA
     Dosage: RECEIVED 13 CYCLES
     Route: 065
  5. AXITINIB [Concomitant]
     Active Substance: AXITINIB
     Indication: METASTASES TO CENTRAL NERVOUS SYSTEM
  6. PEMBROLIZUMAB. [Suspect]
     Active Substance: PEMBROLIZUMAB
     Indication: METASTASES TO CENTRAL NERVOUS SYSTEM
  7. PEMBROLIZUMAB. [Suspect]
     Active Substance: PEMBROLIZUMAB
     Indication: METASTASES TO LUNG

REACTIONS (2)
  - Myocarditis [Recovered/Resolved]
  - Electrocardiogram QT prolonged [Recovered/Resolved]
